FAERS Safety Report 16449093 (Version 1)
Quarter: 2019Q2

REPORT INFORMATION
  Report Type: Report from Study
  Country: CN (occurrence: CN)
  Receive Date: 20190619
  Receipt Date: 20190619
  Transmission Date: 20190711
  Serious: Yes (Hospitalization)
  Sender: FDA-Public Use
  Company Number: CN-ROCHE-2259397

PATIENT
  Age: 56 Year
  Sex: Female
  Weight: 51.5 kg

DRUGS (90)
  1. TRAMADOL HYDROCHLORIDE. [Concomitant]
     Active Substance: TRAMADOL HYDROCHLORIDE
     Route: 048
     Dates: start: 20190110, end: 20190116
  2. POTASSIUM CHLORIDE. [Concomitant]
     Active Substance: POTASSIUM CHLORIDE
     Dosage: PILL
     Route: 048
     Dates: start: 20190420, end: 20190421
  3. AMBROXOL [Concomitant]
     Active Substance: AMBROXOL
     Route: 042
     Dates: start: 20190130, end: 20190225
  4. OXYCODONE [Concomitant]
     Active Substance: OXYCODONE
     Route: 048
     Dates: start: 20190107, end: 20190114
  5. OXYCODONE [Concomitant]
     Active Substance: OXYCODONE
     Route: 048
     Dates: start: 20190202, end: 20190202
  6. DEZOCINE [Concomitant]
     Active Substance: DEZOCINE
     Route: 042
     Dates: start: 20190105, end: 20190105
  7. INDOMETHACIN [INDOMETACIN] [Concomitant]
     Active Substance: INDOMETHACIN
     Route: 054
     Dates: start: 20190218, end: 20190222
  8. CODEINE PHOSPHATE [Concomitant]
     Active Substance: CODEINE PHOSPHATE
     Route: 048
     Dates: start: 20190130, end: 20190130
  9. CODEINE PHOSPHATE [Concomitant]
     Active Substance: CODEINE PHOSPHATE
     Route: 048
     Dates: start: 20190202, end: 20190202
  10. CODEINE PHOSPHATE [Concomitant]
     Active Substance: CODEINE PHOSPHATE
     Route: 048
     Dates: start: 20190207, end: 20190207
  11. MEDROXYPROGESTERONE [Concomitant]
     Active Substance: MEDROXYPROGESTERONE
     Route: 048
     Dates: start: 20190130, end: 20190203
  12. HUMAN SERUM ALBUMIN [Concomitant]
     Active Substance: ALBUMIN HUMAN
     Indication: DECREASED APPETITE
     Route: 042
     Dates: start: 20190201, end: 20190202
  13. LOPERAMIDE [Concomitant]
     Active Substance: LOPERAMIDE
     Route: 048
     Dates: start: 20190212, end: 20190212
  14. POTASSIUM CHLORIDE. [Concomitant]
     Active Substance: POTASSIUM CHLORIDE
     Route: 042
     Dates: start: 20190108, end: 20190116
  15. OXYCONTIN [Concomitant]
     Active Substance: OXYCODONE HYDROCHLORIDE
     Route: 048
     Dates: start: 20190105, end: 20190116
  16. POTASSIUM CITRATE. [Concomitant]
     Active Substance: POTASSIUM CITRATE
     Route: 048
     Dates: start: 20190215, end: 20190215
  17. DUPHALAC [Concomitant]
     Active Substance: LACTULOSE
     Route: 048
     Dates: start: 20190114, end: 20190114
  18. OXYCODONE [Concomitant]
     Active Substance: OXYCODONE
     Route: 048
     Dates: start: 20190105, end: 20190105
  19. INDOMETHACIN [INDOMETACIN] [Concomitant]
     Active Substance: INDOMETHACIN
     Route: 054
     Dates: start: 20190129, end: 20190129
  20. INDOMETHACIN [INDOMETACIN] [Concomitant]
     Active Substance: INDOMETHACIN
     Route: 065
     Dates: start: 20190516, end: 20190516
  21. CODEINE PHOSPHATE [Concomitant]
     Active Substance: CODEINE PHOSPHATE
     Indication: PROPHYLAXIS
     Dosage: 2 TABLET
     Route: 048
     Dates: start: 20190116, end: 20190116
  22. CODEINE PHOSPHATE [Concomitant]
     Active Substance: CODEINE PHOSPHATE
     Dosage: 1 TABLET
     Route: 048
     Dates: start: 20190129, end: 20190129
  23. FLUCONAZOLE. [Concomitant]
     Active Substance: FLUCONAZOLE
     Route: 048
     Dates: start: 20190215, end: 20190215
  24. ATEZOLIZUMAB. [Suspect]
     Active Substance: ATEZOLIZUMAB
     Indication: NON-SMALL CELL LUNG CANCER
     Dosage: ON 30/JAN/2019 AT 12:30, MOST RECENT DOSE OF ATEZOLIZUMAB PRIOR TO PLEURAL EFFUSION AND HYPOTHYROIDI
     Route: 042
     Dates: start: 20181218
  25. TRAMADOL HYDROCHLORIDE. [Concomitant]
     Active Substance: TRAMADOL HYDROCHLORIDE
     Indication: PROPHYLAXIS
     Route: 048
  26. TRAMADOL HYDROCHLORIDE. [Concomitant]
     Active Substance: TRAMADOL HYDROCHLORIDE
     Route: 048
     Dates: start: 20190514, end: 20190517
  27. POTASSIUM CHLORIDE. [Concomitant]
     Active Substance: POTASSIUM CHLORIDE
     Route: 048
     Dates: start: 20190203, end: 20190215
  28. POTASSIUM CHLORIDE. [Concomitant]
     Active Substance: POTASSIUM CHLORIDE
     Dosage: SOLUTION
     Route: 048
     Dates: start: 20190415, end: 20190415
  29. POTASSIUM CITRATE. [Concomitant]
     Active Substance: POTASSIUM CITRATE
     Route: 048
     Dates: start: 20190512, end: 20190512
  30. OXYCODONE [Concomitant]
     Active Substance: OXYCODONE
     Route: 048
     Dates: start: 20190129, end: 20190129
  31. INDOMETHACIN [INDOMETACIN] [Concomitant]
     Active Substance: INDOMETHACIN
     Route: 054
     Dates: start: 20190203, end: 20190203
  32. INDOMETHACIN [INDOMETACIN] [Concomitant]
     Active Substance: INDOMETHACIN
     Route: 048
     Dates: start: 20190220, end: 20190220
  33. INDOMETHACIN [INDOMETACIN] [Concomitant]
     Active Substance: INDOMETHACIN
     Route: 048
     Dates: start: 20190329, end: 20190329
  34. DEXAMETHASONE. [Concomitant]
     Active Substance: DEXAMETHASONE
     Dosage: SOLUTION
     Route: 042
     Dates: start: 20190216, end: 20190225
  35. BERBERINE [Concomitant]
     Active Substance: BERBERINE
     Route: 048
     Dates: start: 20190210, end: 20190210
  36. CEFTIZOXIME SODIUM [Concomitant]
     Active Substance: CEFTIZOXIME SODIUM
     Route: 042
     Dates: start: 20190105, end: 20190118
  37. ONDANSETRON HYDROCHLORIDE. [Concomitant]
     Active Substance: ONDANSETRON HYDROCHLORIDE
     Indication: PROPHYLAXIS
     Dosage: PILL
     Route: 048
     Dates: start: 20190415, end: 20190421
  38. POTASSIUM CHLORIDE. [Concomitant]
     Active Substance: POTASSIUM CHLORIDE
     Indication: DECREASED APPETITE
     Route: 042
     Dates: start: 20190105, end: 20190107
  39. POTASSIUM CHLORIDE. [Concomitant]
     Active Substance: POTASSIUM CHLORIDE
     Dosage: PILL
     Route: 048
     Dates: start: 20190315, end: 20190320
  40. AMBROXOL [Concomitant]
     Active Substance: AMBROXOL
     Route: 042
     Dates: start: 20190105, end: 20190116
  41. DUPHALAC [Concomitant]
     Active Substance: LACTULOSE
     Route: 048
     Dates: start: 20190114, end: 20190116
  42. INDOMETHACIN [INDOMETACIN] [Concomitant]
     Active Substance: INDOMETHACIN
     Route: 054
     Dates: start: 20190213, end: 20190213
  43. INDOMETHACIN [INDOMETACIN] [Concomitant]
     Active Substance: INDOMETHACIN
     Route: 054
     Dates: start: 20190107, end: 20190107
  44. INDOMETHACIN [INDOMETACIN] [Concomitant]
     Active Substance: INDOMETHACIN
     Route: 054
     Dates: start: 20190108, end: 20190108
  45. INDOMETHACIN [INDOMETACIN] [Concomitant]
     Active Substance: INDOMETHACIN
     Route: 065
     Dates: start: 20190512, end: 20190512
  46. INDOMETHACIN [INDOMETACIN] [Concomitant]
     Active Substance: INDOMETHACIN
     Route: 065
     Dates: start: 20190514, end: 20190514
  47. INDOMETHACIN [INDOMETACIN] [Concomitant]
     Active Substance: INDOMETHACIN
     Route: 048
     Dates: start: 20190222, end: 20190222
  48. DEXAMETHASONE. [Concomitant]
     Active Substance: DEXAMETHASONE
     Dosage: SOLUTION
     Route: 042
     Dates: start: 20190215, end: 20190215
  49. BERBERINE [Concomitant]
     Active Substance: BERBERINE
     Route: 048
     Dates: start: 20190212, end: 20190212
  50. BERBERINE [Concomitant]
     Active Substance: BERBERINE
     Route: 048
     Dates: start: 20190220, end: 20190220
  51. FLUCONAZOLE. [Concomitant]
     Active Substance: FLUCONAZOLE
     Route: 048
     Dates: start: 20190215, end: 20190222
  52. ESTAZOLAM. [Concomitant]
     Active Substance: ESTAZOLAM
     Indication: INSOMNIA
     Route: 048
     Dates: start: 20190215, end: 20190217
  53. PANTOPRAZOLE SODIUM. [Concomitant]
     Active Substance: PANTOPRAZOLE SODIUM
     Route: 050
     Dates: start: 20190115, end: 20190116
  54. THYMOSTIMULIN [Concomitant]
     Indication: PROPHYLAXIS
     Route: 065
     Dates: start: 20181115, end: 20181118
  55. BIAPENEM [Concomitant]
     Active Substance: BIAPENEM
     Route: 065
     Dates: start: 20190516, end: 20190522
  56. POTASSIUM CHLORIDE. [Concomitant]
     Active Substance: POTASSIUM CHLORIDE
     Route: 042
     Dates: start: 20190129, end: 20190130
  57. POTASSIUM CHLORIDE. [Concomitant]
     Active Substance: POTASSIUM CHLORIDE
     Route: 065
     Dates: start: 20190515, end: 20190515
  58. INDOMETHACIN [INDOMETACIN] [Concomitant]
     Active Substance: INDOMETHACIN
     Route: 054
     Dates: start: 20190209, end: 20190209
  59. INDOMETHACIN [INDOMETACIN] [Concomitant]
     Active Substance: INDOMETHACIN
     Route: 054
     Dates: start: 20190212, end: 20190212
  60. INDOMETHACIN [INDOMETACIN] [Concomitant]
     Active Substance: INDOMETHACIN
     Route: 054
     Dates: start: 20190323, end: 20190323
  61. MEDROXYPROGESTERONE [Concomitant]
     Active Substance: MEDROXYPROGESTERONE
     Indication: DECREASED APPETITE
     Route: 065
     Dates: start: 20190130, end: 20190130
  62. DEXAMETHASONE. [Concomitant]
     Active Substance: DEXAMETHASONE
     Route: 042
     Dates: start: 20190213, end: 20190214
  63. OSELTAMIVIR [Concomitant]
     Active Substance: OSELTAMIVIR
     Route: 048
     Dates: start: 20190209, end: 20190215
  64. IMIPENEM CILASTATINE MYLAN [Concomitant]
     Active Substance: IMIPENEM
     Route: 042
     Dates: start: 20190131, end: 20190213
  65. PANTOPRAZOLE [Concomitant]
     Active Substance: PANTOPRAZOLE
     Indication: PROPHYLAXIS
     Route: 042
     Dates: start: 20190205, end: 20190225
  66. ALBUMIN [Concomitant]
     Active Substance: ALBUMIN HUMAN
     Dosage: PREPARED FROM HUMAN PLASMA?LIQUID
     Route: 050
     Dates: start: 20190416, end: 20190418
  67. POTASSIUM CHLORIDE. [Concomitant]
     Active Substance: POTASSIUM CHLORIDE
     Route: 042
     Dates: start: 20190130, end: 20190225
  68. INDOMETHACIN [INDOMETACIN] [Concomitant]
     Active Substance: INDOMETHACIN
     Route: 054
     Dates: start: 20190215, end: 20190215
  69. DEXAMETHASONE. [Concomitant]
     Active Substance: DEXAMETHASONE
     Dosage: SOLUTION
     Route: 042
     Dates: start: 20190216, end: 20190225
  70. PLATYCODON GRANDIFLORUS [Concomitant]
     Route: 048
     Dates: start: 20190205, end: 20190205
  71. METOCLOPRAMIDE. [Concomitant]
     Active Substance: METOCLOPRAMIDE
     Indication: DECREASED APPETITE
     Route: 030
     Dates: start: 20190212, end: 20190212
  72. CEFTIZOXIME SODIUM [Concomitant]
     Active Substance: CEFTIZOXIME SODIUM
     Route: 042
     Dates: start: 20190213, end: 20190220
  73. CEFTIZOXIME SODIUM [Concomitant]
     Active Substance: CEFTIZOXIME SODIUM
     Route: 065
     Dates: start: 20181115, end: 20181118
  74. OXYCODONE HYDROCHLORIDE. [Concomitant]
     Active Substance: OXYCODONE HYDROCHLORIDE
     Route: 048
     Dates: start: 20190105
  75. INDOMETHACIN [INDOMETACIN] [Concomitant]
     Active Substance: INDOMETHACIN
     Indication: PROPHYLAXIS
     Route: 054
     Dates: start: 20190106, end: 20190107
  76. INDOMETHACIN [INDOMETACIN] [Concomitant]
     Active Substance: INDOMETHACIN
     Route: 054
     Dates: start: 20190111, end: 20190111
  77. INDOMETHACIN [INDOMETACIN] [Concomitant]
     Active Substance: INDOMETHACIN
     Route: 048
     Dates: start: 20190327, end: 20190327
  78. MEDROXYPROGESTERONE [Concomitant]
     Active Substance: MEDROXYPROGESTERONE
     Route: 065
     Dates: start: 20190514, end: 20190522
  79. DEXAMETHASONE. [Concomitant]
     Active Substance: DEXAMETHASONE
     Indication: PROPHYLAXIS
     Route: 042
     Dates: start: 20190202, end: 20190202
  80. DEXAMETHASONE. [Concomitant]
     Active Substance: DEXAMETHASONE
     Route: 042
     Dates: start: 20190214, end: 20190215
  81. DEXAMETHASONE. [Concomitant]
     Active Substance: DEXAMETHASONE
     Dosage: SOLUTION
     Route: 042
     Dates: start: 20190213, end: 20190213
  82. OSELTAMIVIR [Concomitant]
     Active Substance: OSELTAMIVIR
     Indication: PROPHYLAXIS
     Route: 048
     Dates: start: 20190209, end: 20190209
  83. GRANISETRON [Concomitant]
     Active Substance: GRANISETRON
     Route: 042
     Dates: start: 20190213, end: 20190215
  84. POTASSIUM CITRATE. [Concomitant]
     Active Substance: POTASSIUM CITRATE
     Route: 048
     Dates: start: 20190108, end: 20190116
  85. INDOMETHACIN [INDOMETACIN] [Concomitant]
     Active Substance: INDOMETHACIN
     Indication: PYREXIA
     Route: 054
     Dates: start: 20190111, end: 20190111
  86. INDOMETHACIN [INDOMETACIN] [Concomitant]
     Active Substance: INDOMETHACIN
     Route: 054
     Dates: start: 20190205, end: 20190205
  87. INDOMETHACIN [INDOMETACIN] [Concomitant]
     Active Substance: INDOMETHACIN
     Route: 054
     Dates: start: 20190216, end: 20190218
  88. INDOMETHACIN [INDOMETACIN] [Concomitant]
     Active Substance: INDOMETHACIN
     Dosage: PILL
     Route: 054
     Dates: start: 20190417, end: 20190417
  89. INDOMETHACIN [INDOMETACIN] [Concomitant]
     Active Substance: INDOMETHACIN
     Route: 054
     Dates: start: 20190109, end: 20190109
  90. MOXIFLOXACIN. [Concomitant]
     Active Substance: MOXIFLOXACIN
     Route: 042
     Dates: start: 20190203, end: 20190213

REACTIONS (3)
  - Hydrothorax [Recovered/Resolved]
  - Pleural effusion [Recovered/Resolved]
  - Lung infection [Recovering/Resolving]

NARRATIVE: CASE EVENT DATE: 20190130
